FAERS Safety Report 6800986-1 (Version None)
Quarter: 2010Q2

REPORT INFORMATION
  Report Type: 
  Country: None (occurrence: None)
  Receive Date: 20100624
  Receipt Date: 20100616
  Transmission Date: 20101027
  Serious: Yes (Hospitalization)
  Sender: FDA-Public Use
  Company Number: VISP-NO-1005S-0259

PATIENT
  Age: 62 Year
  Sex: Female

DRUGS (4)
  1. VISIPAQUE [Suspect]
     Indication: CEREBROVASCULAR ACCIDENT
     Dosage: 80 ML, SINGLE DOSE, CORONARY; 60 ML, SINGLE DOSE, I.V.
     Route: 042
     Dates: start: 20091024, end: 20091024
  2. VISIPAQUE [Suspect]
     Indication: CORONARY ARTERY STENOSIS
     Dosage: 80 ML, SINGLE DOSE, CORONARY; 60 ML, SINGLE DOSE, I.V.
     Route: 042
     Dates: start: 20091024, end: 20091024
  3. VISIPAQUE [Suspect]
     Indication: CEREBROVASCULAR ACCIDENT
     Dosage: 80 ML, SINGLE DOSE, CORONARY; 60 ML, SINGLE DOSE, I.V.
     Route: 042
     Dates: start: 20091024, end: 20091024
  4. VISIPAQUE [Suspect]
     Indication: CORONARY ARTERY STENOSIS
     Dosage: 80 ML, SINGLE DOSE, CORONARY; 60 ML, SINGLE DOSE, I.V.
     Route: 042
     Dates: start: 20091024, end: 20091024

REACTIONS (7)
  - AMAUROSIS [None]
  - ANURIA [None]
  - CEREBRAL ATROPHY [None]
  - DELIRIUM [None]
  - LEUKOARAIOSIS [None]
  - LOSS OF CONSCIOUSNESS [None]
  - TOXIC ENCEPHALOPATHY [None]
